FAERS Safety Report 4477232-X (Version None)
Quarter: 2004Q4

REPORT INFORMATION
  Report Type: 
  Country: None (occurrence: None)
  Receive Date: 20041018
  Receipt Date: 20041007
  Transmission Date: 20050328
  Serious: Yes (Other)
  Sender: FDA-Public Use
  Company Number: NL-JNJFOC-20040901978

PATIENT
  Sex: Male

DRUGS (3)
  1. RISPERDAL [Suspect]
     Route: 049
  2. FLUVOXAMINE [Concomitant]
     Route: 049
  3. DEPOT PROVERA [Concomitant]

REACTIONS (2)
  - DYSKINESIA [None]
  - WHITE BLOOD CELL COUNT DECREASED [None]
